FAERS Safety Report 13994403 (Version 1)
Quarter: 2017Q3

REPORT INFORMATION
  Report Type: Spontaneous
  Country: GB (occurrence: GB)
  Receive Date: 20170920
  Receipt Date: 20170920
  Transmission Date: 20171128
  Serious: Yes (Life-Threatening)
  Sender: FDA-Public Use
  Company Number: GB-BAXTER-2017BAX032493

PATIENT
  Age: 28 Year
  Sex: Female

DRUGS (6)
  1. OXYTOCIN. [Suspect]
     Active Substance: OXYTOCIN
     Indication: UTERINE CONTRACTIONS DURING PREGNANCY
     Route: 042
     Dates: start: 20170819
  2. CEFUROXIME. [Suspect]
     Active Substance: CEFUROXIME
     Indication: FORCEPS DELIVERY
     Route: 042
     Dates: start: 20170819, end: 20170819
  3. METRONIDAZOLE 500 MG / 100 ML INTRAVENOUS INFUSION [Suspect]
     Active Substance: METRONIDAZOLE
     Indication: FORCEPS DELIVERY
     Route: 042
     Dates: start: 20170819, end: 20170819
  4. OXYTOCIN. [Suspect]
     Active Substance: OXYTOCIN
     Dosage: DOSE REDUCED
     Route: 042
     Dates: start: 201708
  5. METRONIDAZOLE 500 MG / 100 ML INTRAVENOUS INFUSION [Suspect]
     Active Substance: METRONIDAZOLE
     Dosage: DOSE RE-INTRODUCED
     Route: 042
     Dates: start: 201708
  6. CEFUROXIME. [Suspect]
     Active Substance: CEFUROXIME
     Dosage: DOSE RE-INTRODUCED
     Route: 042
     Dates: start: 201708

REACTIONS (5)
  - Tachycardia [Unknown]
  - Exposure during pregnancy [Not Recovered/Not Resolved]
  - Dermatitis allergic [Recovered/Resolved]
  - Hypotension [Recovered/Resolved]
  - Pruritus generalised [Recovered/Resolved]

NARRATIVE: CASE EVENT DATE: 20170819
